FAERS Safety Report 4310887-9 (Version None)
Quarter: 2004Q1

REPORT INFORMATION
  Report Type: 
  Country: None (occurrence: None)
  Receive Date: 20040302
  Receipt Date: 20040302
  Transmission Date: 20041129
  Serious: Yes (Other)
  Sender: FDA-Public Use
  Company Number: None

PATIENT
  Age: 39 Year
  Sex: Female
  Weight: 59.4212 kg

DRUGS (1)
  1. ZANAFLEX [Suspect]
     Indication: BLADDER SPASM
     Dosage: 4 MG PO BID
     Route: 048
     Dates: start: 20021001

REACTIONS (3)
  - DRUG INEFFECTIVE [None]
  - DYSURIA [None]
  - PHARMACEUTICAL PRODUCT COMPLAINT [None]
